FAERS Safety Report 7628646-8 (Version None)
Quarter: 2011Q3

REPORT INFORMATION
  Report Type: 
  Country: None (occurrence: None)
  Receive Date: 20110714
  Receipt Date: 20110629
  Transmission Date: 20111222
  Serious: Yes (Other)
  Sender: FDA-Public Use
  Company Number: TCI2011A03648

PATIENT
  Age: 76 Year
  Sex: Male

DRUGS (6)
  1. INSULIN HUMAN [Concomitant]
  2. MICARDIS [Concomitant]
  3. AMARYL [Concomitant]
  4. CADUET 2BAN (ATORVASTATIN CALCIUM, AMLODIPINE BESILATE) [Concomitant]
  5. ACTOS [Suspect]
     Indication: DIABETES MELLITUS
     Dosage: 15MG PER ORAL
     Route: 048
     Dates: end: 20110621
  6. SEIBULE (MIGLITOL) [Concomitant]

REACTIONS (1)
  - BLADDER CANCER [None]
